FAERS Safety Report 9060489 (Version 3)
Quarter: 2013Q4

REPORT INFORMATION
  Report Type: Report from Study
  Country: US (occurrence: US)
  Receive Date: 20130212
  Receipt Date: 20131125
  Transmission Date: 20140711
  Serious: Yes (Death, Hospitalization)
  Sender: FDA-Public Use
  Company Number: US-US-EMD SERONO, INC.-7192135

PATIENT
  Age: 61 Year
  Sex: Female

DRUGS (2)
  1. REBIF [Suspect]
     Indication: MULTIPLE SCLEROSIS
     Route: 058
     Dates: start: 20070209, end: 201301
  2. REBIF [Suspect]
     Route: 058
     Dates: start: 20130204, end: 20130823

REACTIONS (2)
  - Pancreatic carcinoma [Fatal]
  - Multiple sclerosis [Unknown]
